FAERS Safety Report 25749621 (Version 1)
Quarter: 2025Q3

REPORT INFORMATION
  Report Type: Spontaneous
  Country: CN (occurrence: CN)
  Receive Date: 20250902
  Receipt Date: 20250902
  Transmission Date: 20251020
  Serious: Yes (Other)
  Sender: ROCHE
  Company Number: CN-ROCHE-10000374667

PATIENT
  Sex: Male

DRUGS (2)
  1. BEVACIZUMAB [Suspect]
     Active Substance: BEVACIZUMAB
     Indication: Glioma
     Route: 042
     Dates: start: 20250724, end: 20250724
  2. CARMUSTINE [Suspect]
     Active Substance: CARMUSTINE
     Indication: Glioma
     Route: 042
     Dates: start: 20250725, end: 20250827

REACTIONS (1)
  - Myelosuppression [Recovering/Resolving]
